FAERS Safety Report 4569548-3 (Version None)
Quarter: 2005Q1

REPORT INFORMATION
  Report Type: 
  Country: None (occurrence: None)
  Receive Date: 20050201
  Receipt Date: 20050119
  Transmission Date: 20050727
  Serious: Yes (Hospitalization)
  Sender: FDA-Public Use
  Company Number: 2005016110

PATIENT
  Age: 64 Year
  Sex: Male

DRUGS (4)
  1. CELEBRA [Suspect]
     Indication: ILL-DEFINED DISORDER
     Dosage: 100 MG (100 MG, 1 IN 1 D), ORAL
     Route: 048
     Dates: end: 20030807
  2. WARFARIN SODIUM [Suspect]
     Indication: ATRIAL FIBRILLATION
     Dosage: (22 MG, 1 IN 1 WK), ORAL
     Route: 048
     Dates: start: 20030708, end: 20030807
  3. METOPROLOL SUCCINATE (METOPROLOL SUCCINATE0 [Concomitant]
  4. ENALAPRIL MALEATE [Concomitant]

REACTIONS (7)
  - ALANINE AMINOTRANSFERASE ABNORMAL [None]
  - BLOOD ALKALINE PHOSPHATASE ABNORMAL [None]
  - FAECES DISCOLOURED [None]
  - HAEMATEMESIS [None]
  - HAEMOGLOBIN ABNORMAL [None]
  - INTERNATIONAL NORMALISED RATIO DECREASED [None]
  - PROTHROMBIN TIME ABNORMAL [None]
